FAERS Safety Report 7959870-2 (Version None)
Quarter: 2011Q4

REPORT INFORMATION
  Report Type: 
  Country: None (occurrence: None)
  Receive Date: 20111206
  Receipt Date: 20111130
  Transmission Date: 20120403
  Serious: Yes (Life-Threatening, Hospitalization)
  Sender: FDA-Public Use
  Company Number: DK-TEVA-300038ISR

PATIENT
  Sex: Female
  Weight: 65.5 kg

DRUGS (10)
  1. VOGALENE [Interacting]
  2. NOXAFIL [Interacting]
     Indication: HEPATOSPLENIC CANDIDIASIS
     Route: 048
     Dates: start: 20071020, end: 20080125
  3. DEXAMETHASONE [Suspect]
  4. CYTARABINE [Interacting]
     Route: 055
  5. POTASSIUM CHLORIDE [Interacting]
     Dosage: 750 MILLIGRAM(S)
     Route: 048
  6. ETOPOSIDE [Interacting]
  7. PANTOPRAZOLE SODIUM [Interacting]
     Dates: start: 20080122, end: 20080125
  8. ONDANSETRON [Interacting]
     Route: 055
     Dates: start: 20080122, end: 20080125
  9. ALLOPURINOL [Interacting]
     Route: 048
  10. ACYCLOVIR [Interacting]

REACTIONS (8)
  - BRADYCARDIA [None]
  - ATRIOVENTRICULAR BLOCK SECOND DEGREE [None]
  - NODAL ARRHYTHMIA [None]
  - DRUG INTERACTION [None]
  - ARRHYTHMIA [None]
  - SINUS TACHYCARDIA [None]
  - SINOATRIAL BLOCK [None]
  - SINUS BRADYCARDIA [None]
